FAERS Safety Report 16668267 (Version 1)
Quarter: 2019Q3

REPORT INFORMATION
  Report Type: Spontaneous
  Country: US (occurrence: US)
  Receive Date: 20190802
  Receipt Date: 20190802
  Transmission Date: 20191004
  Serious: Yes (Hospitalization)
  Sender: FDA-Public Use
  Company Number: None

PATIENT
  Age: 39 Year
  Sex: Male
  Weight: 74.25 kg

DRUGS (1)
  1. TESTOSTERONE. [Suspect]
     Active Substance: TESTOSTERONE
     Indication: HYPOGONADISM
     Dosage: ?          QUANTITY:3 CLICKS;?
     Route: 061
     Dates: start: 20190620, end: 20190801

REACTIONS (6)
  - Palpitations [None]
  - Sinus tachycardia [None]
  - Suspected product contamination [None]
  - Presyncope [None]
  - Bundle branch block right [None]
  - Hiatus hernia [None]

NARRATIVE: CASE EVENT DATE: 20190715
